FAERS Safety Report 8301004-9 (Version None)
Quarter: 2012Q2

REPORT INFORMATION
  Report Type: 
  Country: None (occurrence: None)
  Receive Date: 20120420
  Receipt Date: 20120416
  Transmission Date: 20120825
  Serious: Yes (Hospitalization)
  Sender: FDA-Public Use
  Company Number: US-B.I. PHARMACEUTICALS,INC./RIDGEFIELD-2012-BP-07148BP

PATIENT
  Sex: Female

DRUGS (1)
  1. SPIRIVA [Suspect]
     Indication: EMPHYSEMA
     Dosage: 18 MCG
     Route: 055
     Dates: start: 20090101, end: 20110101

REACTIONS (9)
  - PNEUMONIA [None]
  - RIB FRACTURE [None]
  - SPLENIC RUPTURE [None]
  - TRAUMATIC LUNG INJURY [None]
  - NECK INJURY [None]
  - LIMB INJURY [None]
  - GASTROINTESTINAL INJURY [None]
  - PELVIC FRACTURE [None]
  - ROAD TRAFFIC ACCIDENT [None]
